FAERS Safety Report 9099735 (Version 1)
Quarter: 2013Q1

REPORT INFORMATION
  Report Type: Spontaneous
  Country: FR (occurrence: FR)
  Receive Date: 20130214
  Receipt Date: 20130214
  Transmission Date: 20140127
  Serious: Yes (Death)
  Sender: FDA-Public Use
  Company Number: FR-TEVA-384840ISR

PATIENT
  Age: 68 Year
  Sex: Female

DRUGS (16)
  1. BLEOMYCINE [Suspect]
     Indication: NON-HODGKIN^S LYMPHOMA STAGE IV
     Route: 042
     Dates: start: 20121126, end: 20121126
  2. MABTHERA [Suspect]
     Indication: NON-HODGKIN^S LYMPHOMA STAGE IV
     Route: 042
     Dates: start: 20121126, end: 20121126
  3. DOXORUBICINE [Suspect]
     Indication: NON-HODGKIN^S LYMPHOMA STAGE IV
     Route: 042
     Dates: start: 20121126, end: 20121126
  4. ENDOXAN [Suspect]
     Indication: NON-HODGKIN^S LYMPHOMA STAGE IV
     Route: 042
     Dates: start: 20121126, end: 20121126
  5. ELDISINE [Suspect]
     Indication: NON-HODGKIN^S LYMPHOMA STAGE IV
     Route: 042
     Dates: start: 20121126, end: 20121126
  6. UROMITEXAN 400MG SOLUTION INJECTABLE IV [Concomitant]
     Route: 042
     Dates: start: 20121126, end: 20121126
  7. AZANTAC INJECTABLE 50MG/2ML, SOLUTION INJECTABLE EN AMPOULE [Concomitant]
     Dosage: 50MG/2ML
     Route: 042
  8. PREDNISONE [Concomitant]
     Dosage: 60 MILLIGRAM DAILY;
     Route: 048
     Dates: start: 20121126, end: 20121126
  9. ONDANSETRON [Concomitant]
     Route: 042
     Dates: start: 20121126, end: 20121126
  10. POLARAMINE 5MG/1ML, SOLUTION INJECTABLE [Concomitant]
     Dosage: 5MG/1ML
     Route: 042
     Dates: start: 20121126, end: 20121126
  11. FASTURTEC 1,5 MG/ML, POUDRE ET SOLVANT POUR SOLUTION A DILUER POUR PER [Concomitant]
     Dosage: 1,5 MG/ML
     Route: 042
     Dates: start: 20121126, end: 20121126
  12. HYDROXYZINE RENAUDIN 100MG/2ML, SOLUTION INJECTABLE [Concomitant]
     Dosage: 100MG/2ML
     Route: 042
     Dates: start: 20121126, end: 20121126
  13. TARDYFERON [Concomitant]
     Dosage: 3 DOSAGE FORMS DAILY;
  14. CREON [Concomitant]
     Dosage: 25000 IU (INTERNATIONAL UNIT) DAILY;
  15. NISIS [Concomitant]
     Dosage: 160 MILLIGRAM DAILY;
  16. PARACETAMOL INJECTABLE [Concomitant]

REACTIONS (1)
  - Cardiac failure [Fatal]
